FAERS Safety Report 7733394-X (Version None)
Quarter: 2011Q3

REPORT INFORMATION
  Report Type: 
  Country: None (occurrence: None)
  Receive Date: 20110902
  Receipt Date: 20110902
  Transmission Date: 20111222
  Serious: Yes (Other)
  Sender: FDA-Public Use
  Company Number: None

PATIENT
  Sex: Female
  Weight: 113.8529 kg

DRUGS (1)
  1. CYMBALTA [Suspect]
     Indication: FIBROMYALGIA
     Dates: start: 20090801, end: 20110801

REACTIONS (9)
  - NERVOUSNESS [None]
  - MALAISE [None]
  - SLEEP TALKING [None]
  - PRURITUS [None]
  - ABNORMAL DREAMS [None]
  - ANGER [None]
  - SKIN DISORDER [None]
  - MUSCLE SPASMS [None]
  - FORMICATION [None]
